FAERS Safety Report 14342614 (Version 1)
Quarter: 2018Q1

REPORT INFORMATION
  Report Type: Report from Study
  Country: JP (occurrence: JP)
  Receive Date: 20180102
  Receipt Date: 20180102
  Transmission Date: 20180509
  Serious: Yes (Other)
  Sender: FDA-Public Use
  Company Number: JP-SUN PHARMACEUTICAL INDUSTRIES LTD-2017RR-157186

PATIENT

DRUGS (1)
  1. ASPIRIN. [Suspect]
     Active Substance: ASPIRIN
     Indication: ALLERGY TEST
     Dosage: 10 MG/KG AND MAXIMUM: 500MG, ADMINISTRERED 30 MINUTES BEFORE FOOD INTAKE
     Route: 065

REACTIONS (1)
  - Anaphylactic reaction [Unknown]
